FAERS Safety Report 17342329 (Version 1)
Quarter: 2020Q1

REPORT INFORMATION
  Report Type: Spontaneous
  Country: US (occurrence: US)
  Receive Date: 20200129
  Receipt Date: 20200129
  Transmission Date: 20200409
  Serious: No
  Sender: FDA-Public Use
  Company Number: US-ALLERGAN-1925301US

PATIENT
  Sex: Female

DRUGS (1)
  1. BOTOX [Suspect]
     Active Substance: ONABOTULINUMTOXINA
     Indication: PRODUCT USED FOR UNKNOWN INDICATION
     Dosage: UNK, SINGLE

REACTIONS (13)
  - Sinus pain [Unknown]
  - Chest pain [Unknown]
  - Fatigue [Unknown]
  - Neck pain [Unknown]
  - Joint stiffness [Unknown]
  - Pain [Unknown]
  - Musculoskeletal stiffness [Unknown]
  - Localised oedema [Unknown]
  - Migraine [Unknown]
  - Headache [Unknown]
  - Blepharal pigmentation [Unknown]
  - Vision blurred [Unknown]
  - Influenza like illness [Unknown]
